FAERS Safety Report 7238630-4 (Version None)
Quarter: 2011Q1

REPORT INFORMATION
  Report Type: 
  Country: None (occurrence: None)
  Receive Date: 20110121
  Receipt Date: 20110117
  Transmission Date: 20110831
  Serious: Yes (Life-Threatening, Hospitalization)
  Sender: FDA-Public Use
  Company Number: US-JNJFOC-20110105025

PATIENT
  Sex: Female
  Weight: 66 kg

DRUGS (7)
  1. PALIPERIDONE PALMITATE [Suspect]
     Route: 030
  2. PALIPERIDONE PALMITATE [Suspect]
     Route: 030
  3. ZOCOR [Concomitant]
     Indication: BLOOD CHOLESTEROL
  4. CALCIUM CARBONATE [Concomitant]
     Indication: PROPHYLAXIS
  5. LITHOBID [Concomitant]
     Indication: DRUG THERAPY
  6. PALIPERIDONE PALMITATE [Suspect]
     Indication: SCHIZOAFFECTIVE DISORDER
     Route: 030
  7. MINOCYCLINE HCL [Concomitant]
     Indication: ACNE

REACTIONS (2)
  - SUICIDAL IDEATION [None]
  - AGITATION [None]
